FAERS Safety Report 6820566-1 (Version None)
Quarter: 2010Q3

REPORT INFORMATION
  Report Type: 
  Country: None (occurrence: None)
  Receive Date: 20100707
  Receipt Date: 20100625
  Transmission Date: 20110219
  Serious: Yes (Other)
  Sender: FDA-Public Use
  Company Number: A0855878A

PATIENT
  Age: 53 Year
  Sex: Male

DRUGS (8)
  1. ADVAIR DISKUS 100/50 [Suspect]
     Indication: ASTHMA
     Dosage: 500MCG TWICE PER DAY
     Route: 055
     Dates: start: 20080301
  2. ADVAIR DISKUS 100/50 [Suspect]
     Route: 065
     Dates: start: 20080501, end: 20080901
  3. SYMBICORT [Suspect]
     Indication: PRODUCT USED FOR UNKNOWN INDICATION
     Route: 065
     Dates: start: 20090501, end: 20090701
  4. ACCOLATE [Concomitant]
  5. ALLEGRA [Concomitant]
  6. PRILOSEC [Concomitant]
  7. VENTOLIN [Concomitant]
  8. FLUTICASONE [Concomitant]

REACTIONS (6)
  - APHONIA [None]
  - DYSPHONIA [None]
  - LARYNGITIS [None]
  - PULMONARY FUNCTION TEST ABNORMAL [None]
  - RESPIRATORY MONILIASIS [None]
  - VOCAL CORD DISORDER [None]
